FAERS Safety Report 4340475-X (Version None)
Quarter: 2004Q2

REPORT INFORMATION
  Report Type: 
  Country: None (occurrence: None)
  Receive Date: 20040414
  Receipt Date: 20040402
  Transmission Date: 20050107
  Serious: Yes (Death, Hospitalization)
  Sender: FDA-Public Use
  Company Number: 2004UW00605

PATIENT
  Age: 39 Year
  Sex: Female

DRUGS (16)
  1. CRESTOR [Suspect]
     Dosage: 20 MG HS PO
     Route: 048
     Dates: start: 20041024
  2. NO MATCH [Concomitant]
  3. ZYPREXA [Concomitant]
  4. ALDACTONE [Concomitant]
  5. TEGRETOL [Concomitant]
  6. HYDROXYZINE [Concomitant]
  7. COGENTIN [Concomitant]
  8. DITROPAN [Concomitant]
  9. LASIX [Concomitant]
  10. XANAX [Concomitant]
  11. PREVACID [Concomitant]
  12. NEURONTIN [Concomitant]
  13. ZANTAC [Concomitant]
  14. VICODIN [Concomitant]
  15. ALBUTEROL [Concomitant]
  16. VISTARIL [Concomitant]

REACTIONS (19)
  - ACIDOSIS [None]
  - ACUTE MYOCARDIAL INFARCTION [None]
  - ATHEROSCLEROSIS [None]
  - CARDIOGENIC SHOCK [None]
  - CIRCULATORY COLLAPSE [None]
  - DEHYDRATION [None]
  - DIALYSIS [None]
  - HYPERKALAEMIA [None]
  - HYPOTENSION [None]
  - HYPOVOLAEMIA [None]
  - INTESTINAL ISCHAEMIA [None]
  - OEDEMA PERIPHERAL [None]
  - PAIN IN EXTREMITY [None]
  - PULMONARY CONGESTION [None]
  - PULMONARY OEDEMA [None]
  - PYREXIA [None]
  - RENAL FAILURE [None]
  - RHABDOMYOLYSIS [None]
  - TOXICOLOGIC TEST NORMAL [None]
